FAERS Safety Report 4424066-8 (Version None)
Quarter: 2004Q3

REPORT INFORMATION
  Report Type: 
  Country: None (occurrence: None)
  Receive Date: 20040806
  Receipt Date: 20040723
  Transmission Date: 20050211
  Serious: Yes (Hospitalization)
  Sender: FDA-Public Use
  Company Number: 2004-BP-06029CS

PATIENT
  Age: 62 Year
  Sex: Male

DRUGS (2)
  1. MOBIC [Suspect]
     Indication: GOUT
     Dosage: 7.5 MG (7.5 MG QD) PO
     Route: 048
     Dates: start: 20040719, end: 20040721
  2. ALLOPURINOL (TA) [Concomitant]

REACTIONS (3)
  - DYSPNOEA [None]
  - OEDEMA PERIPHERAL [None]
  - OLIGURIA [None]
